FAERS Safety Report 12200067 (Version 1)
Quarter: 2016Q1

REPORT INFORMATION
  Report Type: Spontaneous
  Country: BE (occurrence: BE)
  Receive Date: 20160322
  Receipt Date: 20160322
  Transmission Date: 20160526
  Serious: Yes (Other)
  Sender: FDA-Public Use
  Company Number: BE-JUBILANT CADISTA PHARMACEUTICALS-2016JUB00100

PATIENT
  Age: 31 Year
  Sex: Female

DRUGS (3)
  1. ORAL CONTRACEPTIVES [Suspect]
     Active Substance: UNSPECIFIED INGREDIENT
     Route: 048
  2. METHYLPREDNISOLONE. [Suspect]
     Active Substance: METHYLPREDNISOLONE
     Indication: INFLAMMATORY BOWEL DISEASE
     Dosage: 32 MG, UNK
     Route: 065
  3. 5-ASA [Concomitant]
     Active Substance: MESALAMINE
     Dosage: 500 MG, 2X/DAY
     Route: 065
     Dates: start: 201105

REACTIONS (1)
  - Deep vein thrombosis [Unknown]

NARRATIVE: CASE EVENT DATE: 201108
